FAERS Safety Report 8831047 (Version 2)
Quarter: 2012Q4

REPORT INFORMATION
  Report Type: 
  Country: US (occurrence: US)
  Receive Date: 20121009
  Receipt Date: 20121123
  Transmission Date: 20130627
  Serious: No
  Sender: FDA-Public Use
  Company Number: US-PFIZER INC-2012246579

PATIENT
  Age: 77 Year
  Sex: Female
  Weight: 58.1 kg

DRUGS (2)
  1. AMLODIPINE BESILATE [Suspect]
     Indication: BLOOD PRESSURE
     Dosage: 2.5 mg, daily
  2. LEVOTHYROXINE SODIUM [Concomitant]
     Indication: THYROID DISORDER
     Dosage: 112 ug, daily

REACTIONS (3)
  - Pruritus [Recovered/Resolved]
  - Skin disorder [Recovered/Resolved]
  - Drug hypersensitivity [Unknown]
